FAERS Safety Report 17191892 (Version 1)
Quarter: 2019Q4

REPORT INFORMATION
  Report Type: Spontaneous
  Country: US (occurrence: US)
  Receive Date: 20191223
  Receipt Date: 20191223
  Transmission Date: 20200122
  Serious: Yes (Other)
  Sender: FDA-Public Use
  Company Number: US-CELGENEUS-USA-20191206865

PATIENT
  Age: 66 Year
  Sex: Male

DRUGS (5)
  1. GEMCITABINE. [Concomitant]
     Active Substance: GEMCITABINE
     Indication: PANCREATIC CARCINOMA METASTATIC
     Dosage: 1000 MILLIGRAM/SQ. METER
     Route: 065
  2. GEMCITABINE. [Concomitant]
     Active Substance: GEMCITABINE
     Dosage: 750 MILLIGRAM/SQ. METER
     Route: 065
  3. SELINEXOR [Concomitant]
     Active Substance: SELINEXOR
     Indication: PANCREATIC CARCINOMA METASTATIC
     Dosage: 60 MILLIGRAM/SQ. METER
     Route: 065
  4. ABRAXANE [Suspect]
     Active Substance: PACLITAXEL
     Indication: PANCREATIC CARCINOMA METASTATIC
     Dosage: 125 MILLIGRAM/SQ. METER
     Route: 041
  5. SELINEXOR [Concomitant]
     Active Substance: SELINEXOR
     Dosage: 60 MILLIGRAM/SQ. METER
     Route: 065

REACTIONS (2)
  - Neuropathy peripheral [Unknown]
  - Oedema peripheral [Unknown]
